FAERS Safety Report 7396539-X (Version None)
Quarter: 2011Q1

REPORT INFORMATION
  Report Type: 
  Country: None (occurrence: None)
  Receive Date: 20110331
  Receipt Date: 20110331
  Transmission Date: 20110831
  Serious: Yes (Other)
  Sender: FDA-Public Use
  Company Number: None

PATIENT
  Age: 25 Year
  Sex: Female
  Weight: 58.9676 kg

DRUGS (1)
  1. DEPO-PROVERA [Suspect]
     Indication: CONTRACEPTION
     Dosage: 150 MG 12 WEEKS IM
     Route: 030
     Dates: start: 20101229

REACTIONS (2)
  - PREGNANCY WITH INJECTABLE CONTRACEPTIVE [None]
  - DRUG EXPOSURE DURING PREGNANCY [None]
